FAERS Safety Report 7884514-8 (Version None)
Quarter: 2011Q4

REPORT INFORMATION
  Report Type: 
  Country: None (occurrence: None)
  Receive Date: 20111102
  Receipt Date: 20111021
  Transmission Date: 20120403
  Serious: Yes (Hospitalization)
  Sender: FDA-Public Use
  Company Number: DE-ELI_LILLY_AND_COMPANY-DE201110005985

PATIENT
  Sex: Female
  Weight: 62 kg

DRUGS (2)
  1. GEMCITABINE HYDROCHLORIDE [Suspect]
     Indication: BREAST CANCER
     Dosage: 1600 MG, UNK
     Route: 048
     Dates: start: 20111004, end: 20111011
  2. DOCETAXEL [Suspect]
     Indication: BREAST CANCER
     Dosage: 120 MG, UNK
     Route: 042
     Dates: start: 20111004

REACTIONS (1)
  - MUCOSAL INFLAMMATION [None]
